FAERS Safety Report 14690663 (Version 1)
Quarter: 2018Q1

REPORT INFORMATION
  Report Type: Report from Study
  Country: ES (occurrence: ES)
  Receive Date: 20180328
  Receipt Date: 20180328
  Transmission Date: 20180509
  Serious: Yes (Life-Threatening, Hospitalization)
  Sender: FDA-Public Use
  Company Number: ES-TEVA-2018-ES-872251

PATIENT
  Age: 30 Year
  Sex: Female

DRUGS (6)
  1. OMEPRAZOLE. [Suspect]
     Active Substance: OMEPRAZOLE
     Indication: SUICIDE ATTEMPT
     Dosage: 20 CPS
     Route: 048
  2. LYRICA [Interacting]
     Active Substance: PREGABALIN
     Indication: SUICIDE ATTEMPT
     Dosage: 5 BLISTER
     Route: 048
  3. TOPAMAX [Interacting]
     Active Substance: TOPIRAMATE
     Indication: SUICIDE ATTEMPT
     Dosage: 6 BLISTER
     Route: 048
  4. TRANXILIUM 15 MG CAPSULAS DURAS, 20 CAPSULAS [Interacting]
     Active Substance: CLORAZEPATE DIPOTASSIUM
     Indication: SUICIDE ATTEMPT
     Dosage: 2 BLISTER
     Route: 048
  5. BRINTELLIX 10 MG COMPRIMIDOS RECUBIERTOS CON PELICULA 28 COMPRIMIDOS [Concomitant]
     Dosage: 1-0-0
     Route: 048
  6. QUETIAPINA 600 [Concomitant]
     Dosage: 0-0-1
     Route: 048

REACTIONS (5)
  - Metabolic acidosis [Recovered/Resolved]
  - Pancreatitis [Recovered/Resolved]
  - Somnolence [Recovered/Resolved]
  - Respiratory failure [Recovered/Resolved]
  - Drug interaction [Unknown]
